FAERS Safety Report 7810918-5 (Version None)
Quarter: 2011Q4

REPORT INFORMATION
  Report Type: 
  Country: None (occurrence: None)
  Receive Date: 20111013
  Receipt Date: 20111010
  Transmission Date: 20120403
  Serious: No
  Sender: FDA-Public Use
  Company Number: US-PFIZER INC-2011241802

PATIENT
  Age: 44 Year
  Sex: Female

DRUGS (2)
  1. PRISTIQ [Suspect]
     Indication: DEPRESSION
     Dosage: UNK
     Route: 048
     Dates: end: 20110101
  2. PRISTIQ [Suspect]
     Indication: PANIC ATTACK

REACTIONS (5)
  - HEART RATE IRREGULAR [None]
  - HEADACHE [None]
  - NAUSEA [None]
  - DIZZINESS [None]
  - IRRITABILITY [None]
